FAERS Safety Report 22763534 (Version 5)
Quarter: 2023Q4

REPORT INFORMATION
  Report Type: Report from Study
  Country: US (occurrence: US)
  Receive Date: 20230730
  Receipt Date: 20231222
  Transmission Date: 20240110
  Serious: No
  Sender: FDA-Public Use
  Company Number: US-002147023-NVSC2023US166739

PATIENT
  Age: 40 Year
  Sex: Female

DRUGS (1)
  1. KESIMPTA [Suspect]
     Active Substance: OFATUMUMAB
     Indication: Multiple sclerosis
     Dosage: 20 MG, QMO
     Route: 058
     Dates: start: 20230621

REACTIONS (5)
  - Photophobia [Recovered/Resolved]
  - Tremor [Recovered/Resolved]
  - Injection site pain [Recovered/Resolved]
  - Hypoaesthesia [Unknown]
  - Mental disorder [Unknown]

NARRATIVE: CASE EVENT DATE: 20230621
